FAERS Safety Report 25582962 (Version 2)
Quarter: 2025Q3

REPORT INFORMATION
  Report Type: Report from Study
  Country: CA (occurrence: CA)
  Receive Date: 20250721
  Receipt Date: 20250812
  Transmission Date: 20251020
  Serious: Yes (Hospitalization)
  Sender: ABBVIE
  Company Number: CA-ABBVIE-6377019

PATIENT
  Age: 71 Year
  Sex: Male

DRUGS (1)
  1. SKYRIZI [Suspect]
     Active Substance: RISANKIZUMAB-RZAA
     Indication: Crohn^s disease
     Route: 058

REACTIONS (8)
  - Gastroenteritis viral [Unknown]
  - Frequent bowel movements [Not Recovered/Not Resolved]
  - Secretion discharge [Recovering/Resolving]
  - Chronic obstructive pulmonary disease [Unknown]
  - Nausea [Unknown]
  - Vomiting [Unknown]
  - Inflammatory bowel disease [Unknown]
  - Gastrointestinal disorder [Unknown]

NARRATIVE: CASE EVENT DATE: 20250101
